FAERS Safety Report 9390291 (Version 4)
Quarter: 2014Q1

REPORT INFORMATION
  Report Type: Report from Study
  Country: JP (occurrence: JP)
  Receive Date: 20130709
  Receipt Date: 20140321
  Transmission Date: 20141002
  Serious: No
  Sender: FDA-Public Use
  Company Number: JP-ROCHE-1246149

PATIENT
  Age: 57 Year
  Sex: Female

DRUGS (5)
  1. RANIBIZUMAB [Suspect]
     Indication: AGE-RELATED MACULAR DEGENERATION
     Route: 050
     Dates: start: 20110428
  2. RANIBIZUMAB [Suspect]
     Route: 050
     Dates: start: 20110627
  3. RANIBIZUMAB [Suspect]
     Route: 050
     Dates: start: 20110926
  4. TEARBALANCE [Concomitant]
     Indication: AGE-RELATED MACULAR DEGENERATION
     Route: 065
     Dates: start: 20110225, end: 20120409
  5. DICLOD [Concomitant]
     Indication: AGE-RELATED MACULAR DEGENERATION
     Route: 065
     Dates: end: 20090810

REACTIONS (2)
  - Visual acuity reduced [Not Recovered/Not Resolved]
  - Macular oedema [Not Recovered/Not Resolved]
